FAERS Safety Report 6301676-4 (Version None)
Quarter: 2009Q3

REPORT INFORMATION
  Report Type: 
  Country: None (occurrence: None)
  Receive Date: 20090807
  Receipt Date: 20090729
  Transmission Date: 20100115
  Serious: Yes (Other)
  Sender: FDA-Public Use
  Company Number: PHEH2009US08361

PATIENT
  Sex: Female

DRUGS (7)
  1. RECLAST [Suspect]
     Dosage: UNK
     Dates: start: 20080811
  2. METOPROLOL TARTRATE [Concomitant]
     Dosage: 200 MG, UNK
  3. LISINOPRIL [Concomitant]
     Dosage: 5 MG, UNK
  4. SIMVASTATIN [Concomitant]
     Dosage: 10 MG, UNK
  5. ASPIRIN [Concomitant]
  6. CALCIUM [Concomitant]
  7. MULTI-VITAMINS [Concomitant]

REACTIONS (7)
  - ARTIFICIAL CROWN PROCEDURE [None]
  - DEVICE BREAKAGE [None]
  - MUSCULOSKELETAL DISCOMFORT [None]
  - ORAL PAIN [None]
  - OSTEONECROSIS [None]
  - TOOTH FRACTURE [None]
  - TOOTH INFECTION [None]
